FAERS Safety Report 23283802 (Version 1)
Quarter: 2023Q4

REPORT INFORMATION
  Report Type: Spontaneous
  Country: CH (occurrence: CH)
  Receive Date: 20231211
  Receipt Date: 20231211
  Transmission Date: 20240109
  Serious: Yes (Other)
  Sender: FDA-Public Use
  Company Number: CH-009507513-2312CHE003136

PATIENT
  Age: 66 Year
  Sex: Female

DRUGS (4)
  1. KEYTRUDA [Suspect]
     Active Substance: PEMBROLIZUMAB
     Indication: Adenocarcinoma of the cervix
     Dosage: UNK
     Dates: start: 20220817, end: 20221203
  2. CARBOPLATIN [Suspect]
     Active Substance: CARBOPLATIN
     Indication: Adenocarcinoma of the cervix
     Dosage: UNK
     Dates: start: 20220817, end: 20221203
  3. PACLITAXEL [Suspect]
     Active Substance: PACLITAXEL
     Indication: Adenocarcinoma of the cervix
     Dosage: UNK
     Dates: start: 20220817, end: 20221203
  4. BEVACIZUMAB [Suspect]
     Active Substance: BEVACIZUMAB
     Indication: Adenocarcinoma of the cervix
     Dosage: UNK
     Dates: start: 20220817, end: 20221203

REACTIONS (7)
  - Bladder cancer recurrent [Unknown]
  - Malignant neoplasm progression [Unknown]
  - Therapy partial responder [Unknown]
  - Bladder disorder [Unknown]
  - Inflammation [Unknown]
  - Rib fracture [Unknown]
  - Cystitis noninfective [Unknown]

NARRATIVE: CASE EVENT DATE: 20220101
